FAERS Safety Report 20511348 (Version 1)
Quarter: 2022Q1

REPORT INFORMATION
  Report Type: Spontaneous
  Country: US (occurrence: None)
  Receive Date: 20220223
  Receipt Date: 20220223
  Transmission Date: 20220423
  Serious: No
  Sender: FDA-Public Use
  Company Number: None

PATIENT

DRUGS (1)
  1. PIQRAY [Suspect]
     Active Substance: ALPELISIB
     Indication: Breast cancer female
     Dosage: OTHER QUANTITY : 200-50 MG;?FREQUENCY : DAILY;?
     Route: 048
     Dates: start: 20210724

REACTIONS (1)
  - Malignant neoplasm progression [None]
